FAERS Safety Report 8895467 (Version 1)
Quarter: 2012Q4

REPORT INFORMATION
  Report Type: 
  Country: US (occurrence: US)
  Receive Date: 20121108
  Receipt Date: 20121108
  Transmission Date: 20130627
  Serious: No
  Sender: FDA-Public Use
  Company Number: US-TEVA-368903USA

PATIENT
  Sex: Female
  Weight: 59.02 kg

DRUGS (6)
  1. ACTIQ [Suspect]
     Dosage: Q 4-6 hrs PRN
     Route: 048
  2. ANESTACON [Suspect]
  3. NEXIUM [Concomitant]
     Indication: GASTRIC DISORDER
  4. UNKNOWN [Concomitant]
     Indication: NAUSEA
  5. UNKNOWN [Concomitant]
     Indication: MUSCLE RELAXANT THERAPY
  6. WARFARIN [Concomitant]
     Indication: THROMBOSIS

REACTIONS (3)
  - Dental caries [Not Recovered/Not Resolved]
  - Tooth erosion [Not Recovered/Not Resolved]
  - Tooth loss [Not Recovered/Not Resolved]
